FAERS Safety Report 5816057-7 (Version None)
Quarter: 2008Q3

REPORT INFORMATION
  Report Type: 
  Country: None (occurrence: None)
  Receive Date: 20080716
  Receipt Date: 20080716
  Transmission Date: 20090109
  Serious: Yes (Hospitalization)
  Sender: FDA-Public Use
  Company Number: None

PATIENT
  Age: 23 Year
  Sex: Male
  Weight: 102.9665 kg

DRUGS (8)
  1. CLOZAPINE [Suspect]
     Indication: SCHIZOAFFECTIVE DISORDER
     Dosage: 125MG QHS PO
     Route: 048
     Dates: start: 20080625, end: 20080708
  2. CLOZAPINE 100MG TEVA [Concomitant]
  3. NICOTINE [Concomitant]
  4. DEPAKOTE ER [Concomitant]
  5. LORAZEPAM [Concomitant]
  6. ACETAMINOPHEN [Concomitant]
  7. NICOTINE [Concomitant]
  8. ANTACID TAB [Concomitant]

REACTIONS (4)
  - ABDOMINAL PAIN [None]
  - CHEST PAIN [None]
  - DYSPEPSIA [None]
  - SINUS TACHYCARDIA [None]
